FAERS Safety Report 7329144 (Version 2)
Quarter: 2013Q4

REPORT INFORMATION
  Report Type: Spontaneous
  Country: US (occurrence: None)
  Receive Date: 20100305
  Receipt Date: 20131231
  Transmission Date: 20140711
  Serious: Yes (Hospitalization)
  Sender: FDA-Public Use
  Company Number: 2010S1001231

PATIENT
  Age: 81 Year
  Sex: Female

DRUGS (7)
  1. FLEET PHOSPHO-SODA [Suspect]
     Indication: COLONOSCOPY
     Dosage: 90 ML; TOTAL; PO
  2. FLEET PHOSPHO-SODA [Suspect]
     Indication: COLONOSCOPY
     Dosage: 90 ML; TOTAL; PO
  3. MOBIC [Suspect]
     Dates: end: 20030726
  4. ELAVIL (AMITRIPTYLINE HYDROCHLORIDE) [Concomitant]
  5. PREVACID (LANSOPRAZOLE) [Concomitant]
  6. COVERA (VERAPAMIL HYDROCHLORIDE) [Concomitant]
  7. TYLENOL (PARACETAMOL) [Concomitant]

REACTIONS (7)
  - Renal failure acute [None]
  - Nephrogenic anaemia [None]
  - Hyperparathyroidism [None]
  - Hyponatraemia [None]
  - Renal failure chronic [None]
  - Hypotension [None]
  - Renal tubular necrosis [None]
